FAERS Safety Report 6889206-X (Version None)
Quarter: 2010Q3

REPORT INFORMATION
  Report Type: 
  Country: None (occurrence: None)
  Receive Date: 20100730
  Receipt Date: 20080114
  Transmission Date: 20110219
  Serious: No
  Sender: FDA-Public Use
  Company Number: US-PFIZER INC-2008004750

PATIENT
  Sex: Male

DRUGS (2)
  1. LIPITOR [Suspect]
  2. CLARITHROMYCIN [Interacting]
     Indication: BRONCHITIS

REACTIONS (2)
  - BRONCHITIS [None]
  - DRUG INTERACTION [None]
